FAERS Safety Report 24797511 (Version 2)
Quarter: 2025Q3

REPORT INFORMATION
  Report Type: Spontaneous
  Country: US (occurrence: US)
  Receive Date: 20250102
  Receipt Date: 20250816
  Transmission Date: 20251021
  Serious: No
  Sender: ALEXION PHARMACEUTICALS
  Company Number: US-AstraZeneca-CH-00763996A

PATIENT
  Sex: Male

DRUGS (1)
  1. FARXIGA [Suspect]
     Active Substance: DAPAGLIFLOZIN PROPANEDIOL
     Route: 065

REACTIONS (9)
  - Weight decreased [Recovered/Resolved]
  - Weight increased [Not Recovered/Not Resolved]
  - Nightmare [Recovered/Resolved]
  - Muscle twitching [Recovered/Resolved]
  - Dyskinesia [Recovered/Resolved]
  - Diarrhoea [Unknown]
  - Decreased appetite [Unknown]
  - Glucose tolerance impaired [Not Recovered/Not Resolved]
  - Affect lability [Unknown]
